FAERS Safety Report 9960757 (Version 1)
Quarter: 2014Q1

REPORT INFORMATION
  Report Type: Report from Study
  Country: US (occurrence: US)
  Receive Date: 20140305
  Receipt Date: 20140305
  Transmission Date: 20141002
  Serious: No
  Sender: FDA-Public Use
  Company Number: US-ABBVIE-13P-163-1107422-00

PATIENT
  Age: 72 Year
  Sex: Male

DRUGS (13)
  1. HUMIRA [Suspect]
     Indication: CROHN^S DISEASE
     Dates: start: 20130520
  2. HUMIRA [Suspect]
     Dates: start: 20130603
  3. HUMIRA [Suspect]
     Dates: start: 20130617
  4. ONGLYZA [Concomitant]
     Indication: DIABETES MELLITUS
  5. METFORMIN [Concomitant]
     Indication: PRODUCT USED FOR UNKNOWN INDICATION
  6. LANTUS [Concomitant]
     Indication: DIABETES MELLITUS
     Dosage: 32UNITS IN AN, 40 UNITS AT NIGHT
  7. LOVASTATIN [Concomitant]
     Indication: BLOOD CHOLESTEROL INCREASED
  8. LISINOPRIL [Concomitant]
     Indication: HYPERTENSION
  9. NIFEDIPINE [Concomitant]
     Indication: HYPERTENSION
  10. ZANTAC [Concomitant]
     Indication: GASTROOESOPHAGEAL REFLUX DISEASE
     Dosage: 150MG DAILY
  11. NEXIUM [Concomitant]
     Indication: GASTROOESOPHAGEAL REFLUX DISEASE
  12. CANASA [Concomitant]
     Indication: CROHN^S DISEASE
     Dosage: AT NIGHT
  13. CALCIUM [Concomitant]
     Indication: MINERAL SUPPLEMENTATION

REACTIONS (3)
  - Injection site pain [Recovered/Resolved]
  - Injection site urticaria [Recovered/Resolved]
  - Injection site haemorrhage [Recovering/Resolving]
